FAERS Safety Report 8855118 (Version 1)
Quarter: 2012Q4

REPORT INFORMATION
  Report Type: 
  Country: US (occurrence: US)
  Receive Date: 20121023
  Receipt Date: 20121023
  Transmission Date: 20130627
  Serious: Yes (Other)
  Sender: FDA-Public Use
  Company Number: US-UCBSA-069245

PATIENT
  Sex: Female

DRUGS (2)
  1. CIMZIA [Suspect]
     Indication: RHEUMATOID ARTHRITIS
     Dates: start: 201205
  2. DEPO SHOT [Concomitant]
     Indication: CONTRACEPTION

REACTIONS (2)
  - Pregnancy with injectable contraceptive [Unknown]
  - Pregnancy [Recovered/Resolved]
